FAERS Safety Report 9352494 (Version 2)
Quarter: 2013Q3

REPORT INFORMATION
  Report Type: Spontaneous
  Country: JP (occurrence: JP)
  Receive Date: 20130617
  Receipt Date: 20130719
  Transmission Date: 20140515
  Serious: Yes (Life-Threatening)
  Sender: FDA-Public Use
  Company Number: JP-ASTRAZENECA-2013SE46331

PATIENT
  Age: 85 Year
  Sex: Male
  Weight: 37.3 kg

DRUGS (19)
  1. SEROQUEL [Suspect]
     Indication: RESTLESSNESS
     Route: 048
     Dates: start: 20130528, end: 20130531
  2. SEROQUEL [Suspect]
     Indication: CANCER PAIN
     Route: 048
     Dates: start: 20130528, end: 20130531
  3. NOVAMIN [Suspect]
     Indication: CANCER PAIN
     Route: 065
     Dates: start: 20130528, end: 20130531
  4. NOVAMIN [Suspect]
     Indication: RESTLESSNESS
     Route: 065
     Dates: start: 20130528, end: 20130531
  5. RISPERDAL [Concomitant]
     Indication: CANCER PAIN
     Route: 048
     Dates: start: 20130524, end: 20130527
  6. RISPERDAL [Concomitant]
     Indication: RESTLESSNESS
     Route: 048
     Dates: start: 20130524, end: 20130527
  7. DUROTEP [Concomitant]
     Indication: CANCER PAIN
     Dates: start: 20130522
  8. DUROTEP [Concomitant]
     Indication: RESTLESSNESS
     Dates: start: 20130522
  9. ZYVOX [Concomitant]
     Dates: start: 20130527, end: 20130602
  10. OXINORM [Concomitant]
     Dates: start: 20130521
  11. SELBEX [Concomitant]
     Dates: start: 201304
  12. METHYLCOBAL [Concomitant]
     Dates: start: 201304
  13. DOGMATYL [Concomitant]
     Dates: start: 201304
  14. ASPIRIN [Concomitant]
     Route: 048
     Dates: start: 201304
  15. SODIUM CHLORIDE [Concomitant]
     Dosage: EXTERNAL
     Dates: start: 201304
  16. AMLODIPINE [Concomitant]
     Dates: start: 201304
  17. ALLOPURINOL [Concomitant]
     Dates: start: 201304
  18. TAKEPRON [Concomitant]
     Dates: start: 201304
  19. DEPAS [Concomitant]
     Dates: start: 201304

REACTIONS (2)
  - Hypoglycaemia [Recovered/Resolved]
  - Off label use [Unknown]
